FAERS Safety Report 9387376 (Version 1)
Quarter: 2013Q3

REPORT INFORMATION
  Report Type: Spontaneous
  Country: US (occurrence: US)
  Receive Date: 20130708
  Receipt Date: 20130708
  Transmission Date: 20140515
  Serious: No
  Sender: FDA-Public Use
  Company Number: US-GLAXOSMITHKLINE-A1020638A

PATIENT
  Age: 28 Year
  Sex: Male
  Weight: 64.5 kg

DRUGS (3)
  1. POTIGA [Suspect]
     Indication: CONVULSION
     Dosage: 600MG PER DAY
     Route: 048
     Dates: start: 2013
  2. LAMICTAL [Concomitant]
     Route: 048
  3. CLONAZEPAM [Concomitant]

REACTIONS (1)
  - Chromaturia [Not Recovered/Not Resolved]
